FAERS Safety Report 20136546 (Version 1)
Quarter: 2021Q4

REPORT INFORMATION
  Report Type: Report from Study
  Country: US (occurrence: US)
  Receive Date: 20211201
  Receipt Date: 20211201
  Transmission Date: 20220303
  Serious: No
  Sender: FDA-Public Use
  Company Number: US-Ipsen Biopharmaceuticals, Inc.-2021-29721

PATIENT
  Age: 47 Year
  Sex: Male

DRUGS (1)
  1. SOMATULINE DEPOT [Suspect]
     Active Substance: LANREOTIDE ACETATE
     Indication: Carcinoid tumour of the small bowel
     Dosage: 120MG, EVERY FOUR WEEKS, SUBCUTANEOUS
     Route: 058
     Dates: start: 202012

REACTIONS (2)
  - Diarrhoea [Recovering/Resolving]
  - Nausea [Recovered/Resolved]
